FAERS Safety Report 23988065 (Version 2)
Quarter: 2024Q3

REPORT INFORMATION
  Report Type: Spontaneous
  Country: US (occurrence: None)
  Receive Date: 20240619
  Receipt Date: 20240717
  Transmission Date: 20241016
  Serious: No
  Sender: INFORLIFE
  Company Number: US-INFO-20240166

PATIENT

DRUGS (1)
  1. NOREPINEPHRINE BITARTRATE [Suspect]
     Active Substance: NOREPINEPHRINE BITARTRATE
     Dosage: ()

REACTIONS (3)
  - No adverse event [Unknown]
  - Device leakage [Unknown]
  - Medication error [Unknown]
